FAERS Safety Report 9215542 (Version 1)
Quarter: 2013Q2

REPORT INFORMATION
  Report Type: Report from Study
  Country: CA (occurrence: CA)
  Receive Date: 20130407
  Receipt Date: 20130407
  Transmission Date: 20140414
  Serious: Yes (Other)
  Sender: FDA-Public Use
  Company Number: CA-JNJFOC-20130317699

PATIENT
  Sex: Female
  Weight: 84.5 kg

DRUGS (9)
  1. REMICADE [Suspect]
     Indication: RHEUMATOID ARTHRITIS
     Route: 042
  2. METHOTREXATE [Concomitant]
     Route: 065
  3. FOLIC ACID [Concomitant]
     Route: 065
  4. HYDROCHLOROTHIAZIDE [Concomitant]
     Route: 065
  5. SLOW K [Concomitant]
     Route: 065
  6. NEXIUM [Concomitant]
     Route: 065
  7. ADVAIR [Concomitant]
     Route: 065
  8. VENTOLIN [Concomitant]
     Route: 065
  9. DEMEROL [Concomitant]
     Route: 065

REACTIONS (1)
  - Nephrolithiasis [Recovered/Resolved]
